FAERS Safety Report 14524598 (Version 2)
Quarter: 2018Q1

REPORT INFORMATION
  Report Type: Spontaneous
  Country: DE (occurrence: DE)
  Receive Date: 20180213
  Receipt Date: 20180216
  Transmission Date: 20180509
  Serious: Yes (Other)
  Sender: FDA-Public Use
  Company Number: DE-MERCK KGAA-2041853

PATIENT
  Age: 32 Year
  Sex: Female

DRUGS (4)
  1. EUTHYROX 50 [Suspect]
     Active Substance: LEVOTHYROXINE SODIUM
     Route: 048
  2. EUTHYROX 75 [Suspect]
     Active Substance: LEVOTHYROXINE SODIUM
     Route: 048
  3. NOVOTHYROX [Suspect]
     Active Substance: LEVOTHYROXINE SODIUM
     Indication: AUTOIMMUNE THYROIDITIS
     Route: 048
  4. NOVOTHYROX [Suspect]
     Active Substance: LEVOTHYROXINE SODIUM
     Indication: HYPOTHYROIDISM
     Route: 048

REACTIONS (10)
  - Constipation [Recovering/Resolving]
  - Feeling abnormal [None]
  - Breast atrophy [None]
  - Fatigue [Not Recovered/Not Resolved]
  - Metabolic disorder [Not Recovered/Not Resolved]
  - Palpitations [Not Recovered/Not Resolved]
  - Arrhythmia [Not Recovered/Not Resolved]
  - Weight decreased [Not Recovered/Not Resolved]
  - Therapy change [None]
  - Maternal exposure during pregnancy [None]
